FAERS Safety Report 5275574-1 (Version None)
Quarter: 2007Q1

REPORT INFORMATION
  Report Type: 
  Country: None (occurrence: None)
  Receive Date: 20061213
  Receipt Date: 20051025
  Transmission Date: 20070707
  Serious: Yes (Death)
  Sender: FDA-Public Use
  Company Number: 2005UW14963

PATIENT
  Age: 18 Year
  Sex: Male
  Weight: 112.0385 kg

DRUGS (2)
  1. SEROQUEL [Suspect]
     Indication: SCHIZOPHRENIA
     Dosage: 600 MG; PO
     Route: 048
     Dates: start: 20050127, end: 20050804
  2. GEODON [Suspect]
     Indication: SCHIZOPHRENIA
     Dosage: 200 MG; PO
     Route: 048

REACTIONS (1)
  - INTENTIONAL OVERDOSE [None]
